FAERS Safety Report 4293265-0 (Version None)
Quarter: 2004Q1

REPORT INFORMATION
  Report Type: 
  Country: None (occurrence: None)
  Receive Date: 20040210
  Receipt Date: 20040128
  Transmission Date: 20041129
  Serious: Yes (Life-Threatening, Other)
  Sender: FDA-Public Use
  Company Number: USA-2004-0012716

PATIENT
  Age: 44 Year
  Sex: Female

DRUGS (1)
  1. MS CONTIN [Suspect]
     Indication: PAIN
     Dosage: 30 MG, TID

REACTIONS (3)
  - CONVULSION [None]
  - MYOCARDIAL INFARCTION [None]
  - POISONING [None]
